FAERS Safety Report 7660895-5 (Version None)
Quarter: 2011Q3

REPORT INFORMATION
  Report Type: 
  Country: None (occurrence: None)
  Receive Date: 20110805
  Receipt Date: 20101001
  Transmission Date: 20111222
  Serious: No
  Sender: FDA-Public Use
  Company Number: US-ABBOTT-10P-163-0676869-00

PATIENT
  Age: 68 Year
  Sex: Female
  Weight: 74.002 kg

DRUGS (4)
  1. NIASPAN [Suspect]
     Dosage: IN AM AFTER BREAKFAST
     Route: 048
  2. NIASPAN [Suspect]
     Indication: BLOOD CHOLESTEROL INCREASED
     Dosage: IN AM AFTER BREAKFAST
     Route: 048
  3. NIASPAN [Suspect]
     Route: 048
     Dates: start: 20100922
  4. SYNTHROID [Concomitant]
     Indication: HYPOTHYROIDISM
     Route: 048

REACTIONS (2)
  - MIDDLE INSOMNIA [None]
  - HEART RATE IRREGULAR [None]
